APPROVED DRUG PRODUCT: SODIUM ACETATE
Active Ingredient: SODIUM ACETATE
Strength: 400MEQ/100ML (4MEQ/ML)
Dosage Form/Route: SOLUTION;INTRAVENOUS
Application: A206687 | Product #001 | TE Code: AP
Applicant: FRESENIUS KABI USA LLC
Approved: Oct 30, 2017 | RLD: No | RS: Yes | Type: RX